FAERS Safety Report 9665163 (Version 2)
Quarter: 2013Q4

REPORT INFORMATION
  Report Type: Spontaneous
  Country: FI (occurrence: FI)
  Receive Date: 20131101
  Receipt Date: 20131101
  Transmission Date: 20140711
  Serious: Yes (Hospitalization, Other)
  Sender: FDA-Public Use
  Company Number: FI-009507513-1009FIN00006

PATIENT
  Age: 66 Year
  Sex: Female

DRUGS (4)
  1. ALENDRONATE SODIUM [Suspect]
     Indication: OSTEOPOROSIS
     Dosage: 70 MG, QW
     Route: 048
     Dates: start: 2001, end: 2007
  2. ALENDRONATE SODIUM [Suspect]
     Dosage: 10 MG, QD
  3. MODURETIC [Concomitant]
     Dosage: UNK UNK, QD
     Route: 048
  4. SERETIDE DISKUS [Concomitant]
     Route: 055

REACTIONS (2)
  - Femur fracture [Unknown]
  - Bone operation [Unknown]
